FAERS Safety Report 6904877-7 (Version None)
Quarter: 2010Q3

REPORT INFORMATION
  Report Type: 
  Country: None (occurrence: None)
  Receive Date: 20100804
  Receipt Date: 20090726
  Transmission Date: 20110219
  Serious: No
  Sender: FDA-Public Use
  Company Number: US-PFIZER INC-2009246391

PATIENT
  Age: 78 Year
  Sex: Female
  Weight: 75.3 kg

DRUGS (6)
  1. LYRICA [Suspect]
     Indication: NEURALGIA
     Dosage: 75 MG, 2X/DAY
     Route: 048
     Dates: start: 20090722
  2. HYDROCODONE BITARTRATE [Concomitant]
     Dosage: UNK
  3. LEVOXYL [Concomitant]
     Dosage: UNK
  4. RANITIDINE [Concomitant]
     Dosage: UNK
  5. LISINOPRIL [Concomitant]
     Dosage: UNK
  6. HERCEPTIN [Concomitant]
     Dosage: UNK

REACTIONS (2)
  - PAIN [None]
  - SKIN BURNING SENSATION [None]
